FAERS Safety Report 10618672 (Version 1)
Quarter: 2014Q4

REPORT INFORMATION
  Report Type: Spontaneous
  Country: TW (occurrence: None)
  Receive Date: 20141124
  Receipt Date: 20141124
  Transmission Date: 20150529
  Serious: Yes (Hospitalization)
  Sender: FDA-Public Use
  Company Number: TW-ZYDUS-005523

PATIENT
  Age: 74 Year
  Sex: Male

DRUGS (2)
  1. WARFARIN (WARFARIN) [Suspect]
     Active Substance: WARFARIN
     Indication: DEEP VEIN THROMBOSIS
  2. QUETIAPINE (QUETIAPINE) [Suspect]
     Active Substance: QUETIAPINE
     Indication: VASCULAR DEMENTIA

REACTIONS (5)
  - Psychotic disorder [None]
  - International normalised ratio increased [None]
  - Drug interaction [None]
  - Activated partial thromboplastin time prolonged [None]
  - Prothrombin time prolonged [None]
